FAERS Safety Report 7025099-8 (Version None)
Quarter: 2010Q4

REPORT INFORMATION
  Report Type: 
  Country: None (occurrence: None)
  Receive Date: 20101001
  Receipt Date: 20100927
  Transmission Date: 20110411
  Serious: Yes (Other)
  Sender: FDA-Public Use
  Company Number: FI-SANOFI-AVENTIS-2010SA055321

PATIENT
  Age: 80 Year
  Sex: Female

DRUGS (4)
  1. SOLOSTAR [Suspect]
     Route: 058
  2. APIDRA SOLOSTAR [Suspect]
     Dosage: DOSE:42 UNIT(S)
     Route: 058
     Dates: start: 20100817, end: 20100817
  3. SOLOSTAR [Suspect]
     Route: 058
  4. LANTUS [Suspect]
     Dosage: DOSE:42 UNIT(S)
     Route: 058

REACTIONS (1)
  - WRONG DRUG ADMINISTERED [None]
